FAERS Safety Report 12907406 (Version 1)
Quarter: 2016Q4

REPORT INFORMATION
  Report Type: Spontaneous
  Country: US (occurrence: US)
  Receive Date: 20161103
  Receipt Date: 20161103
  Transmission Date: 20170207
  Serious: Yes (Other)
  Sender: FDA-Public Use
  Company Number: US-GLAXOSMITHKLINE-US2016161701

PATIENT
  Age: 41 Year
  Sex: Female

DRUGS (1)
  1. GAS-X EXTRA STRENGTH [Suspect]
     Active Substance: DIMETHICONE
     Indication: FLATULENCE
     Dosage: UNK
     Route: 048

REACTIONS (1)
  - Coeliac disease [Not Recovered/Not Resolved]
